FAERS Safety Report 13792224 (Version 1)
Quarter: 2017Q3

REPORT INFORMATION
  Report Type: Spontaneous
  Country: US (occurrence: US)
  Receive Date: 20170725
  Receipt Date: 20170725
  Transmission Date: 20171127
  Serious: No
  Sender: FDA-Public Use
  Company Number: US-ROCHE-681916

PATIENT
  Age: 20 Year
  Sex: Female

DRUGS (1)
  1. MEFLOQUINE HYDROCHLORIDE. [Suspect]
     Active Substance: MEFLOQUINE HYDROCHLORIDE
     Indication: PRODUCT USED FOR UNKNOWN INDICATION
     Dosage: DRUG NAME: MEFLOQUINE
     Route: 048

REACTIONS (1)
  - Rash [Not Recovered/Not Resolved]
